FAERS Safety Report 10945887 (Version 1)
Quarter: 2015Q1

REPORT INFORMATION
  Report Type: Spontaneous
  Country: US (occurrence: None)
  Receive Date: 20150212
  Receipt Date: 20150212
  Transmission Date: 20150721
  Serious: No
  Sender: FDA-Public Use
  Company Number: TPA2011A01244

PATIENT
  Age: 61 Year
  Sex: Male
  Weight: 104.33 kg

DRUGS (7)
  1. FISH OIL (FISH OIL) [Concomitant]
     Active Substance: FISH OIL
  2. ULORIC [Suspect]
     Active Substance: FEBUXOSTAT
     Indication: GOUT
     Route: 048
     Dates: start: 201103, end: 20110322
  3. COLCHICINE (COLCHICINE) [Suspect]
     Active Substance: COLCHICINE
     Indication: GOUT
     Dates: start: 201103, end: 20110322
  4. NORTRIPTYLINE (NORTRIPTYLINE) [Concomitant]
     Active Substance: NORTRIPTYLINE
  5. ZETIA [Concomitant]
     Active Substance: EZETIMIBE
  6. GABAPENTIN (GABAPENTIN) [Concomitant]
     Active Substance: GABAPENTIN
  7. DIOVAN [Concomitant]
     Active Substance: VALSARTAN

REACTIONS (1)
  - Gout [None]

NARRATIVE: CASE EVENT DATE: 20110321
